FAERS Safety Report 9362799 (Version 1)
Quarter: 2013Q2

REPORT INFORMATION
  Report Type: Spontaneous
  Country: TR (occurrence: TR)
  Receive Date: 20130624
  Receipt Date: 20130624
  Transmission Date: 20140414
  Serious: Yes (Other)
  Sender: FDA-Public Use
  Company Number: TR-AMGEN-TURSP2013043843

PATIENT
  Age: 67 Year
  Sex: Female

DRUGS (1)
  1. ENBREL [Suspect]
     Indication: PSORIASIS
     Dosage: 50 MG, WEEKLY
     Route: 058
     Dates: start: 20130315, end: 201303

REACTIONS (7)
  - Autoimmune thyroiditis [Not Recovered/Not Resolved]
  - Renal failure [Unknown]
  - Anuria [Recovered/Resolved]
  - Pyrexia [Recovered/Resolved]
  - Oedema [Recovered/Resolved]
  - Weight increased [Recovered/Resolved]
  - Eye oedema [Not Recovered/Not Resolved]
